FAERS Safety Report 22311395 (Version 2)
Quarter: 2023Q2

REPORT INFORMATION
  Report Type: Spontaneous
  Country: FR (occurrence: FR)
  Receive Date: 20230511
  Receipt Date: 20230612
  Transmission Date: 20230721
  Serious: Yes (Hospitalization, Other)
  Sender: FDA-Public Use
  Company Number: None

PATIENT
  Age: 53 Year
  Sex: Female

DRUGS (15)
  1. KEYTRUDA [Suspect]
     Active Substance: PEMBROLIZUMAB
     Indication: Triple negative breast cancer
     Dosage: 200 MILLIGRAM, ONCE
     Route: 042
     Dates: start: 20230213, end: 20230213
  2. KEYTRUDA [Suspect]
     Active Substance: PEMBROLIZUMAB
     Dosage: 200 MILLIGRAM, ONCE
     Route: 042
     Dates: start: 20230403, end: 20230403
  3. KEYTRUDA [Suspect]
     Active Substance: PEMBROLIZUMAB
     Dosage: 200 MILLIGRAM, ONCE
     Route: 042
     Dates: start: 20230306, end: 20230306
  4. CARBOPLATIN [Suspect]
     Active Substance: CARBOPLATIN
     Indication: Triple negative breast cancer
     Dosage: 239.5 MILLIGRAM, ONCE
     Route: 042
     Dates: start: 20230313, end: 20230313
  5. CARBOPLATIN [Suspect]
     Active Substance: CARBOPLATIN
     Dosage: 188.5 MILLIGRAM, ONCE
     Route: 042
     Dates: start: 20230410, end: 20230410
  6. CARBOPLATIN [Suspect]
     Active Substance: CARBOPLATIN
     Dosage: 188.5 MILLIGRAM, ONCE
     Route: 042
     Dates: start: 20230403, end: 20230403
  7. CARBOPLATIN [Suspect]
     Active Substance: CARBOPLATIN
     Dosage: 234.5 MILLIGRAM, ONCE
     Route: 042
     Dates: start: 20230220, end: 20230220
  8. CARBOPLATIN [Suspect]
     Active Substance: CARBOPLATIN
     Dosage: 231.5 MILLIGRAM, ONCE
     Route: 042
     Dates: start: 20230213, end: 20230213
  9. CARBOPLATIN [Suspect]
     Active Substance: CARBOPLATIN
     Dosage: 224.5 MILLIGRAM, ONCE
     Route: 042
     Dates: start: 20230306, end: 20230306
  10. GEMCITABINE HYDROCHLORIDE [Suspect]
     Active Substance: GEMCITABINE HYDROCHLORIDE
     Indication: Triple negative breast cancer
     Dosage: 1670 MILLIGRAM, ONCE
     Route: 042
     Dates: start: 20230220, end: 20230220
  11. GEMCITABINE HYDROCHLORIDE [Suspect]
     Active Substance: GEMCITABINE HYDROCHLORIDE
     Dosage: 1670 MILLIGRAM, ONCE
     Route: 042
     Dates: start: 20230213, end: 20230213
  12. GEMCITABINE HYDROCHLORIDE [Suspect]
     Active Substance: GEMCITABINE HYDROCHLORIDE
     Dosage: 1352 MILLIGRAM, ONCE
     Route: 042
     Dates: start: 20230403, end: 20230403
  13. GEMCITABINE HYDROCHLORIDE [Suspect]
     Active Substance: GEMCITABINE HYDROCHLORIDE
     Dosage: 1352 MILLIGRAM, ONCE
     Route: 042
     Dates: start: 20230410, end: 20230410
  14. GEMCITABINE HYDROCHLORIDE [Suspect]
     Active Substance: GEMCITABINE HYDROCHLORIDE
     Dosage: 1690 MILLIGRAM, ONCE
     Route: 042
     Dates: start: 20230306, end: 20230306
  15. GEMCITABINE HYDROCHLORIDE [Suspect]
     Active Substance: GEMCITABINE HYDROCHLORIDE
     Dosage: 1690 MILLIGRAM, ONCE
     Route: 042
     Dates: start: 20230313, end: 20230313

REACTIONS (3)
  - Cytopenia [Recovered/Resolved]
  - Vomiting [Recovering/Resolving]
  - Nausea [Recovered/Resolved]

NARRATIVE: CASE EVENT DATE: 20230213
